FAERS Safety Report 9159742 (Version 1)
Quarter: 2013Q1

REPORT INFORMATION
  Report Type: Spontaneous
  Country: US (occurrence: None)
  Receive Date: 20130220
  Receipt Date: 20130220
  Transmission Date: 20140127
  Serious: Yes (Other)
  Sender: FDA-Public Use
  Company Number: AUR-APL-2013-01435

PATIENT
  Age: 77 Year
  Sex: Female
  Weight: 68.03 kg

DRUGS (9)
  1. METOPROLOL (METOPROLOL) [Suspect]
     Indication: HYPERTENSION
     Dates: start: 201301
  2. LISINOPRIL (LISINOPRIL) [Suspect]
  3. LYRICA (PREGABALIN) [Suspect]
     Dosage: 75 MG (25 MG, 3 IN ONE DAY).
     Dates: start: 2012, end: 201211
  4. DILTIAZEM [Suspect]
     Dosage: 1 PER DAY.
  5. LIPITOR (ATORVASTATIN CALCIUM) [Suspect]
  6. GLUCOSAMINE (GLUCOSAMINE) [Concomitant]
  7. VITAMINS [Concomitant]
  8. GLUCOSAMINE (GLUCOSAMINE) [Concomitant]
  9. VITAMINS [Concomitant]

REACTIONS (8)
  - Hypertension [None]
  - Drug ineffective [None]
  - Cystitis [None]
  - Urinary tract infection [None]
  - Scratch [None]
  - Insomnia [None]
  - Pain in extremity [None]
  - Blood sodium decreased [None]
